FAERS Safety Report 11048273 (Version 13)
Quarter: 2016Q3

REPORT INFORMATION
  Report Type: Report from Study
  Country: BE (occurrence: BE)
  Receive Date: 20150420
  Receipt Date: 20160809
  Transmission Date: 20161109
  Serious: Yes (Hospitalization, Other)
  Sender: FDA-Public Use
  Company Number: BE-ABBVIE-15P-013-1376860-00

PATIENT
  Age: 68 Year
  Sex: Female

DRUGS (6)
  1. DUODOPA [Suspect]
     Active Substance: CARBIDOPA\LEVODOPA
     Dosage: AM=0ML; CD=1.9ML/HR DURING 16HRS; ED= 1ML; ND= 1.7ML/HR DURING 8HRS
     Route: 050
     Dates: start: 20140205, end: 20150409
  2. DUODOPA [Suspect]
     Active Substance: CARBIDOPA\LEVODOPA
     Dosage: AM=0ML, CD=1.9ML/H FOR 16HRS, ED=1ML, ND=1.7ML/H FOR 8HRS
     Route: 050
     Dates: start: 20150424, end: 201608
  3. DUODOPA [Suspect]
     Active Substance: CARBIDOPA\LEVODOPA
     Indication: PARKINSON^S DISEASE
     Dosage: AM=3.5ML; CD=1.6ML/HR DURING 16HRS; ED=1ML
     Route: 050
     Dates: start: 20101004, end: 20101008
  4. DUODOPA [Suspect]
     Active Substance: CARBIDOPA\LEVODOPA
     Dosage: AM=0ML;CD=1.9ML/HR DURING 16HRS; ED= 1ML; ND= 1.7ML/HR DURING 8HRS
     Route: 050
     Dates: start: 20150409, end: 20150424
  5. DUODOPA [Suspect]
     Active Substance: CARBIDOPA\LEVODOPA
     Dosage: DOSE CONTINUOUSLY MONITORED AND ADAPTED
     Route: 050
     Dates: start: 20101008, end: 20140205
  6. LEVODOPA [Concomitant]
     Active Substance: LEVODOPA
     Indication: PRODUCT USED FOR UNKNOWN INDICATION

REACTIONS (18)
  - Incorrect route of drug administration [Recovered/Resolved]
  - Decreased appetite [Recovering/Resolving]
  - Cardiac disorder [Unknown]
  - Drug dose omission [Unknown]
  - Epilepsy [Recovered/Resolved]
  - Device dislocation [Recovered/Resolved]
  - Stoma site infection [Unknown]
  - Back pain [Unknown]
  - General physical health deterioration [Unknown]
  - Fall [Unknown]
  - Weight decreased [Unknown]
  - Asthenia [Recovering/Resolving]
  - Dyskinesia [Unknown]
  - Colon cancer [Unknown]
  - Granuloma [Recovered/Resolved]
  - Colon cancer metastatic [Unknown]
  - Anaemia [Unknown]
  - Candida infection [Unknown]

NARRATIVE: CASE EVENT DATE: 20150409
